FAERS Safety Report 8903159 (Version 1)
Quarter: 2012Q4

REPORT INFORMATION
  Report Type: 
  Country: CO (occurrence: CO)
  Receive Date: 20121113
  Receipt Date: 20121113
  Transmission Date: 20130627
  Serious: Yes (Death)
  Sender: FDA-Public Use
  Company Number: CO-PFIZER INC-2012280965

PATIENT
  Age: 46 Year
  Sex: Male

DRUGS (3)
  1. GENOTROPIN [Suspect]
     Indication: BLOOD GROWTH HORMONE ABNORMAL
     Dosage: 1.4 mg, 1x/day
     Route: 058
     Dates: start: 2010
  2. HALOPERIDOL [Concomitant]
     Indication: PSYCHIATRIC DISORDER NOS
     Dosage: 5 mg, 1x/day
     Route: 048
     Dates: start: 2002
  3. PREDNISOLON [Concomitant]
     Indication: BONE DISORDER
     Dosage: UNK

REACTIONS (2)
  - Infarction [Fatal]
  - Headache [Not Recovered/Not Resolved]
